FAERS Safety Report 8871321 (Version 1)
Quarter: 2012Q4

REPORT INFORMATION
  Report Type: 
  Country: US (occurrence: US)
  Receive Date: 20121023
  Receipt Date: 20121023
  Transmission Date: 20130627
  Serious: Yes (Death, Other)
  Sender: FDA-Public Use
  Company Number: US-ROCHE-1130806

PATIENT
  Sex: Female

DRUGS (6)
  1. HERCEPTIN [Suspect]
     Indication: BREAST CANCER FEMALE
     Route: 065
  2. HERCEPTIN [Suspect]
     Indication: METASTASES TO CENTRAL NERVOUS SYSTEM
     Route: 065
  3. TAXOL [Concomitant]
  4. TAXOTERE [Concomitant]
  5. ADRIAMYCIN [Concomitant]
  6. CYCLOPHOSPHAMIDE [Concomitant]

REACTIONS (17)
  - Death [Fatal]
  - Pleural effusion [Unknown]
  - Mental impairment [Unknown]
  - Dyspnoea [Unknown]
  - Nausea [Unknown]
  - Pain [Unknown]
  - Asthenia [Unknown]
  - Cough [Recovering/Resolving]
  - Spinal cord compression [Unknown]
  - Decreased appetite [Unknown]
  - Peripheral coldness [Unknown]
  - Urinary retention [Unknown]
  - Asthenia [Unknown]
  - Weight decreased [Unknown]
  - Vomiting [Unknown]
  - Hypoaesthesia [Unknown]
  - Paraesthesia [Unknown]
